FAERS Safety Report 7965024-6 (Version None)
Quarter: 2011Q4

REPORT INFORMATION
  Report Type: 
  Country: None (occurrence: None)
  Receive Date: 20111208
  Receipt Date: 20111205
  Transmission Date: 20120403
  Serious: Yes (Hospitalization, Other)
  Sender: FDA-Public Use
  Company Number: US-TEVA-312309USA

PATIENT
  Sex: Male

DRUGS (4)
  1. DEXTROPROPOXYPHENE [Suspect]
     Indication: PAIN
  2. PROPOXYPHENE NAPSYLATE W/ ACETAMINOPHEN [Suspect]
     Indication: PAIN
  3. PROPOXYPHENE NAPSYLATE W/ ACETAMINOPHEN [Suspect]
     Indication: COMPLEX REGIONAL PAIN SYNDROME
  4. DEXTROPROPOXYPHENE [Suspect]
     Indication: COMPLEX REGIONAL PAIN SYNDROME

REACTIONS (9)
  - ATRIAL FIBRILLATION [None]
  - ANHEDONIA [None]
  - ANXIETY [None]
  - PRODUCT QUALITY ISSUE [None]
  - PAIN [None]
  - CEREBROVASCULAR ACCIDENT [None]
  - TRANSIENT ISCHAEMIC ATTACK [None]
  - ARRHYTHMIA [None]
  - HEART RATE IRREGULAR [None]
